FAERS Safety Report 6663378-4 (Version None)
Quarter: 2010Q2

REPORT INFORMATION
  Report Type: 
  Country: None (occurrence: None)
  Receive Date: 20100401
  Receipt Date: 20100330
  Transmission Date: 20101027
  Serious: Yes (Other)
  Sender: FDA-Public Use
  Company Number: US-ROXANE LABORATORIES, INC.-2010-RO-00354RO

PATIENT
  Age: 42 Year
  Sex: Female

DRUGS (9)
  1. PREDNISONE TAB [Suspect]
     Indication: DERMATITIS BULLOUS
     Dosage: 40 MG
  2. FLUCONAZOLE [Suspect]
     Indication: TINEA INFECTION
  3. MYCOPHENOLATE MOFETIL [Suspect]
     Indication: LINEAR IGA DISEASE
     Dosage: 2 G
  4. DAPSONE [Suspect]
     Indication: EVIDENCE BASED TREATMENT
  5. CIMETIDINE [Suspect]
     Indication: EVIDENCE BASED TREATMENT
     Dosage: 600 MG
  6. PERMETHRIN [Suspect]
     Indication: ACARODERMATITIS
     Route: 061
  7. TETRACYCLINE [Suspect]
     Indication: LINEAR IGA DISEASE
  8. NIACINAMIDE [Suspect]
     Indication: LINEAR IGA DISEASE
     Dosage: 1500 MG
  9. SULFAPYRIDINE [Suspect]
     Indication: LINEAR IGA DISEASE
     Dosage: 1000 MG

REACTIONS (6)
  - ALOPECIA [None]
  - DRUG INEFFECTIVE [None]
  - DYSPHORIA [None]
  - HEADACHE [None]
  - REBOUND EFFECT [None]
  - WEIGHT INCREASED [None]
